FAERS Safety Report 15745888 (Version 1)
Quarter: 2018Q4

REPORT INFORMATION
  Report Type: Spontaneous
  Country: JP (occurrence: JP)
  Receive Date: 20181220
  Receipt Date: 20181220
  Transmission Date: 20190205
  Serious: Yes (Other)
  Sender: FDA-Public Use
  Company Number: JP-TEVA-2018-JP-006865J

PATIENT
  Age: 89 Year
  Sex: Male

DRUGS (1)
  1. VERAPAMIL HYDROCHLORIDE TABLET 40MG TAIYO [Suspect]
     Active Substance: VERAPAMIL HYDROCHLORIDE
     Indication: PRODUCT USED FOR UNKNOWN INDICATION
     Dosage: 120 MILLIGRAM DAILY; EVERY AFTER MEAL
     Route: 048

REACTIONS (2)
  - Blood pressure decreased [Unknown]
  - Bradycardia [Unknown]
